FAERS Safety Report 23201684 (Version 1)
Quarter: 2023Q4

REPORT INFORMATION
  Report Type: Spontaneous
  Country: US (occurrence: None)
  Receive Date: 20231117
  Receipt Date: 20231117
  Transmission Date: 20240109
  Serious: No
  Sender: FDA-Public Use
  Company Number: None

PATIENT
  Age: 57 Year
  Sex: Female

DRUGS (1)
  1. LENALIDOMIDE [Suspect]
     Active Substance: LENALIDOMIDE
     Indication: Plasma cell myeloma
     Dosage: FREQUENCY : DAILY;?
     Route: 048
     Dates: start: 20231004

REACTIONS (6)
  - Decreased appetite [None]
  - Gastrointestinal disorder [None]
  - Fatigue [None]
  - Pain [None]
  - Cough [None]
  - Night sweats [None]

NARRATIVE: CASE EVENT DATE: 20231105
